FAERS Safety Report 25640440 (Version 2)
Quarter: 2025Q3

REPORT INFORMATION
  Report Type: Spontaneous
  Country: JP (occurrence: JP)
  Receive Date: 20250804
  Receipt Date: 20250826
  Transmission Date: 20251020
  Serious: Yes (Hospitalization, Other)
  Sender: ALEXION PHARMACEUTICALS
  Company Number: JP-ASTRAZENECA-202507JPN022880JP

PATIENT
  Age: 32 Year
  Sex: Female

DRUGS (1)
  1. ULTOMIRIS [Suspect]
     Active Substance: RAVULIZUMAB-CWVZ
     Indication: Neuromyelitis optica spectrum disorder
     Route: 065

REACTIONS (6)
  - Osteonecrosis [Unknown]
  - Sjogren^s syndrome [Unknown]
  - Rash [Unknown]
  - Photosensitivity reaction [Unknown]
  - Complement factor decreased [Unknown]
  - Antinuclear antibody positive [Unknown]
